FAERS Safety Report 12194716 (Version 1)
Quarter: 2016Q1

REPORT INFORMATION
  Report Type: Spontaneous
  Country: US (occurrence: US)
  Receive Date: 20160321
  Receipt Date: 20160321
  Transmission Date: 20160526
  Serious: No
  Sender: FDA-Public Use
  Company Number: US-TEVA-628413USA

PATIENT
  Sex: Female

DRUGS (1)
  1. IRBESARTAN. [Suspect]
     Active Substance: IRBESARTAN
     Route: 065
     Dates: start: 2015

REACTIONS (3)
  - Dysphonia [Unknown]
  - Product substitution issue [Unknown]
  - Head discomfort [Unknown]

NARRATIVE: CASE EVENT DATE: 2015
